FAERS Safety Report 6711505-2 (Version None)
Quarter: 2010Q2

REPORT INFORMATION
  Report Type: 
  Country: None (occurrence: None)
  Receive Date: 20100505
  Receipt Date: 20100421
  Transmission Date: 20101027
  Serious: Yes (Hospitalization)
  Sender: FDA-Public Use
  Company Number: PHHY2010NL20497

PATIENT
  Sex: Male
  Weight: 85 kg

DRUGS (12)
  1. DIOVAN [Suspect]
     Dosage: 80 MG, ONCE DAILY
     Dates: start: 20080409
  2. DIOVAN [Suspect]
     Dosage: 40 MG, BID
  3. EZETROL [Concomitant]
     Indication: BLOOD CHOLESTEROL
     Dosage: 1 TABLET DAILY
     Route: 048
  4. METFORMIN HCL [Concomitant]
     Indication: TYPE 2 DIABETES MELLITUS
     Dosage: 2 DF, BID
  5. CARVEDILOL [Concomitant]
     Indication: BLOOD PRESSURE
     Dosage: 1 DF, QD
  6. ACENOCOUMAROL [Concomitant]
  7. BUMETANIDE [Concomitant]
     Indication: CARDIAC FAILURE
     Dosage: 1 DF, QD
     Route: 048
  8. DIGOXIN [Concomitant]
     Indication: CARDIAC FAILURE
     Dosage: 1 DF, QD
     Route: 048
  9. URSACOL [Concomitant]
     Indication: HEPATIC CIRRHOSIS
     Dosage: 1 DF, QID
     Route: 048
  10. VITAMIN C AND E [Concomitant]
  11. ASCORBIC ACID [Concomitant]
     Indication: HEPATIC CIRRHOSIS
     Dosage: 1 DF, QD
     Route: 048
  12. VITAMIN E [Concomitant]
     Indication: HEPATIC CIRRHOSIS
     Dosage: 1 DF, QD
     Route: 048

REACTIONS (4)
  - DIZZINESS [None]
  - FALL [None]
  - HEAD DISCOMFORT [None]
  - OFF LABEL USE [None]
